FAERS Safety Report 11135468 (Version 1)
Quarter: 2015Q2

REPORT INFORMATION
  Report Type: Spontaneous
  Country: None (occurrence: None)
  Receive Date: 20150522
  Receipt Date: 20150522
  Transmission Date: 20150821
  Serious: No
  Sender: FDA-Public Use
  Company Number: None

PATIENT
  Age: 30 Year
  Sex: Female
  Weight: 65.77 kg

DRUGS (5)
  1. BENLYSTA [Suspect]
     Active Substance: BELIMUMAB
     Indication: SYSTEMIC LUPUS ERYTHEMATOSUS
     Dosage: INFUSION MONTHLY INTO A VEIN
     Dates: start: 20141230, end: 20150501
  2. IBUPROFEN. [Concomitant]
     Active Substance: IBUPROFEN
  3. PREVACID [Concomitant]
     Active Substance: LANSOPRAZOLE
  4. CYMBALTA [Concomitant]
     Active Substance: DULOXETINE HYDROCHLORIDE
  5. BUPROPION [Concomitant]
     Active Substance: BUPROPION

REACTIONS (3)
  - Diarrhoea [None]
  - Nausea [None]
  - Anorectal disorder [None]

NARRATIVE: CASE EVENT DATE: 20150210
